FAERS Safety Report 26152537 (Version 1)
Quarter: 2025Q4

REPORT INFORMATION
  Report Type: Report from Study
  Country: EU (occurrence: EU)
  Receive Date: 20251214
  Receipt Date: 20251214
  Transmission Date: 20260118
  Serious: Yes (Death, Hospitalization)
  Sender: ABBVIE
  Company Number: EU-ABBVIE-6587284

PATIENT
  Age: 80 Year
  Sex: Female

DRUGS (1)
  1. FOSCARBIDOPA\FOSLEVODOPA [Suspect]
     Active Substance: FOSCARBIDOPA\FOSLEVODOPA
     Indication: Parkinson^s disease
     Dosage: CRN: 0.27 ML/H, CR: 0.37 ML/H, CRH: 0.39 ML/H, ED: 0.20 ML
     Route: 058
     Dates: start: 20241118

REACTIONS (1)
  - Malnutrition [Fatal]
